FAERS Safety Report 21686977 (Version 1)
Quarter: 2022Q4

REPORT INFORMATION
  Report Type: Spontaneous
  Country: DE (occurrence: DE)
  Receive Date: 20221206
  Receipt Date: 20221206
  Transmission Date: 20230113
  Serious: Yes (Other)
  Sender: FDA-Public Use
  Company Number: DE-STERISCIENCE B.V.-2022-ST-000138

PATIENT
  Sex: Male
  Weight: 1.48 kg

DRUGS (12)
  1. MEROPENEM [Suspect]
     Active Substance: MEROPENEM
     Indication: Product used for unknown indication
     Dosage: PATIENT^S MOTHER DOSE WAS 1000MG THREE TIMES A DAY
     Route: 064
  2. MEROPENEM [Suspect]
     Active Substance: MEROPENEM
     Indication: Product used for unknown indication
     Dosage: PATIENT^S MOTHER DOSE WAS 500 MG PER DAY
     Route: 064
  3. AMOXICILLIN [Suspect]
     Active Substance: AMOXICILLIN
     Indication: Product used for unknown indication
     Dosage: PATIENT^S MOTHER DOSE WAS 1000MG PER DAY
     Route: 064
  4. AMPICILLIN SODIUM [Suspect]
     Active Substance: AMPICILLIN SODIUM
     Indication: Product used for unknown indication
     Dosage: PATIENT^S MOTHER DOSE WAS 1000MG THREE TIMES A DAY
     Route: 064
  5. AZITHROMYCIN ANHYDROUS [Suspect]
     Active Substance: AZITHROMYCIN ANHYDROUS
     Indication: Product used for unknown indication
     Dosage: PATIENT^S MOTHER DOSE WAS 500 MG ONCE
     Route: 064
  6. CLINDAMYCIN [Suspect]
     Active Substance: CLINDAMYCIN
     Indication: Product used for unknown indication
     Dosage: PATIENT^S MOTHER DOSE WAS 600 MG TWICE DAILY
     Route: 064
  7. BETAMETHASONE [Suspect]
     Active Substance: BETAMETHASONE
     Indication: Product used for unknown indication
     Dosage: PATIENT^S MOTHER DOSE WAS 12MG PER DAY FOR 2 DAYS
     Route: 064
  8. CEFUROXIME [Suspect]
     Active Substance: CEFUROXIME
     Indication: Product used for unknown indication
     Dosage: PATIENT^S MOTHER DOSE WAS 1.5 GRAM THREE TIMES A DAY
     Route: 064
  9. CIPROFLOXACIN [Suspect]
     Active Substance: CIPROFLOXACIN
     Indication: Product used for unknown indication
     Dosage: PATIENT^S MOTHER DOSE WAS 400MG PER DAY
     Route: 064
  10. CIPROFLOXACIN [Suspect]
     Active Substance: CIPROFLOXACIN
     Indication: Product used for unknown indication
     Dosage: PATIENT^S MOTHER DOSE WAS 500 MG TWICE A DAY
     Route: 064
  11. CLARITHROMYCIN [Suspect]
     Active Substance: CLARITHROMYCIN
     Indication: Product used for unknown indication
     Dosage: PATIENT^S MOTHER DOSE WAS 250MG TWICE DAILY
     Route: 064
  12. METRONIDAZOLE [Suspect]
     Active Substance: METRONIDAZOLE
     Indication: Product used for unknown indication
     Dosage: PATIENT^S MOTHER DOSE WAS 500MG THREE TIMES A DAY
     Route: 064

REACTIONS (2)
  - Premature baby [Unknown]
  - Foetal exposure during pregnancy [Unknown]
